FAERS Safety Report 12741161 (Version 1)
Quarter: 2016Q3

REPORT INFORMATION
  Report Type: Spontaneous
  Country: BR (occurrence: BR)
  Receive Date: 20160914
  Receipt Date: 20160914
  Transmission Date: 20161109
  Serious: Yes (Other)
  Sender: FDA-Public Use
  Company Number: PHHY2016BR125483

PATIENT
  Sex: Female
  Weight: 64 kg

DRUGS (2)
  1. ESTREVA [Suspect]
     Active Substance: ESTRADIOL
     Indication: HORMONE REPLACEMENT THERAPY
     Route: 062
  2. ESTRADOT [Suspect]
     Active Substance: ESTRADIOL
     Indication: HORMONE REPLACEMENT THERAPY
     Dosage: 2 DF, QW
     Route: 062
     Dates: start: 199608

REACTIONS (4)
  - Diabetes mellitus [Unknown]
  - Breast swelling [Unknown]
  - Hot flush [Not Recovered/Not Resolved]
  - Dry skin [Recovering/Resolving]
